FAERS Safety Report 23501501 (Version 3)
Quarter: 2024Q4

REPORT INFORMATION
  Report Type: Report from Study
  Country: JP (occurrence: JP)
  Receive Date: 20240208
  Receipt Date: 20241022
  Transmission Date: 20250115
  Serious: Yes (Hospitalization, Other)
  Sender: ALEXION PHARMACEUTICALS
  Company Number: 2023A193865

PATIENT
  Age: 83 Year
  Weight: 55 kg

DRUGS (4)
  1. DURVALUMAB [Suspect]
     Active Substance: DURVALUMAB
     Indication: Hepatocellular carcinoma
     Dosage: DOSE UNKNOWN
  2. IMJUDO [Suspect]
     Active Substance: TREMELIMUMAB\TREMELIMUMAB-ACTL
     Dosage: DOSE UNKNOWN , UNKNOWN
  3. CORTRIL [Concomitant]
     Active Substance: HYDROCORTISONE
  4. ATEZOLIZUMAB [Concomitant]
     Active Substance: ATEZOLIZUMAB

REACTIONS (3)
  - Secondary adrenocortical insufficiency [Recovered/Resolved]
  - Central hypothyroidism [Recovered/Resolved]
  - Empty sella syndrome [Unknown]
